FAERS Safety Report 6639746-3 (Version None)
Quarter: 2010Q1

REPORT INFORMATION
  Report Type: 
  Country: None (occurrence: None)
  Receive Date: 20100318
  Receipt Date: 20100308
  Transmission Date: 20100710
  Serious: Yes (Other)
  Sender: FDA-Public Use
  Company Number: PHEH2009US02428

PATIENT
  Sex: Female

DRUGS (40)
  1. AREDIA [Suspect]
     Indication: MULTIPLE MYELOMA
     Dosage: UNK
     Dates: end: 20070101
  2. THALIDOMIDE [Concomitant]
     Dosage: UNK
     Dates: start: 20041101, end: 20070101
  3. PREDNISONE [Concomitant]
     Dosage: UNK
     Dates: end: 20050501
  4. CLINDAMYCIN [Concomitant]
     Dosage: 300 MG, UNK
  5. DEXAMETHASONE [Concomitant]
  6. OMEPRAZOLE [Concomitant]
  7. FUROSEMIDE [Concomitant]
  8. SPIRONOLACTONE [Concomitant]
  9. PROMETHAZINE [Concomitant]
  10. PERIDEX [Concomitant]
  11. DECADRON [Concomitant]
  12. CIPRO [Concomitant]
     Dosage: 500 MG, BID
  13. HYDROCODONE [Concomitant]
  14. PRILOSEC [Concomitant]
  15. AZITHROMYCIN [Concomitant]
  16. ZITHROMAX [Concomitant]
  17. OXYCODONE HCL [Concomitant]
  18. ERYTHROMYCIN [Concomitant]
  19. HYDROMORPHONE HCL [Concomitant]
  20. ONDANSETRON [Concomitant]
  21. METHADONE HCL [Concomitant]
  22. TORADOL [Concomitant]
  23. VICODIN [Concomitant]
  24. MORPHINE [Concomitant]
  25. ASPIRIN [Concomitant]
  26. AMITRIPTYLINE HCL [Concomitant]
  27. PERCOCET [Concomitant]
  28. FERROUS GLUCONATE [Concomitant]
  29. LOVENOX [Concomitant]
  30. MS CONTIN [Concomitant]
  31. METRONIDAZOLE [Concomitant]
  32. VISTARIL [Concomitant]
  33. PROPRANOLOL [Concomitant]
  34. RANITIDINE [Concomitant]
  35. ELAVIL [Concomitant]
  36. MAXALT [Concomitant]
  37. RABEPRAZOLE SODIUM [Concomitant]
  38. KENALOG [Concomitant]
  39. HYDROXYCHLOROQUINE SULFATE [Concomitant]
  40. CELECOXIB [Concomitant]

REACTIONS (31)
  - ANHEDONIA [None]
  - ANXIETY [None]
  - ARNOLD-CHIARI MALFORMATION [None]
  - ASTHENIA [None]
  - DEFORMITY [None]
  - DENTAL CARIES [None]
  - DISCOMFORT [None]
  - EATING DISORDER [None]
  - EMOTIONAL DISTRESS [None]
  - ENDODONTIC PROCEDURE [None]
  - GASTROOESOPHAGEAL REFLUX DISEASE [None]
  - GINGIVITIS [None]
  - INJURY [None]
  - JAW OPERATION [None]
  - LIFE EXPECTANCY SHORTENED [None]
  - NEUROPATHY PERIPHERAL [None]
  - OSTEOMYELITIS [None]
  - OSTEONECROSIS [None]
  - PAIN [None]
  - PAIN IN JAW [None]
  - PAROTITIS [None]
  - PERIODONTAL DISEASE [None]
  - PERONEAL NERVE PALSY [None]
  - PHYSICAL DISABILITY [None]
  - PNEUMONIA [None]
  - ROTATOR CUFF SYNDROME [None]
  - SWELLING FACE [None]
  - TOOTH ABSCESS [None]
  - TOOTH EXTRACTION [None]
  - TOOTH LOSS [None]
  - TRISMUS [None]
